FAERS Safety Report 12061026 (Version 1)
Quarter: 2016Q1

REPORT INFORMATION
  Report Type: Spontaneous
  Country: JP (occurrence: JP)
  Receive Date: 20160210
  Receipt Date: 20160210
  Transmission Date: 20160526
  Serious: Yes (Hospitalization)
  Sender: FDA-Public Use
  Company Number: PHBS1996JP05397

PATIENT
  Age: 7 Year
  Sex: Male
  Weight: 83 kg

DRUGS (2)
  1. VOLTAREN [Suspect]
     Active Substance: DICLOFENAC SODIUM
     Route: 054
     Dates: start: 19960623, end: 19960623
  2. VOLTAREN [Suspect]
     Active Substance: DICLOFENAC SODIUM
     Dates: start: 19960623, end: 19960623

REACTIONS (4)
  - Depressed level of consciousness [Unknown]
  - Cyanosis [Unknown]
  - Acute respiratory distress syndrome [Recovered/Resolved]
  - Respiratory distress [Recovering/Resolving]

NARRATIVE: CASE EVENT DATE: 19960623
